FAERS Safety Report 9930523 (Version 1)
Quarter: 2014Q1

REPORT INFORMATION
  Report Type: Spontaneous
  Country: US (occurrence: US)
  Receive Date: 20140227
  Receipt Date: 20140227
  Transmission Date: 20141002
  Serious: No
  Sender: FDA-Public Use
  Company Number: US-AMGEN-USASP2013088267

PATIENT
  Age: 65 Year
  Sex: Female
  Weight: 54.42 kg

DRUGS (5)
  1. ENBREL [Suspect]
     Indication: PRODUCT USED FOR UNKNOWN INDICATION
     Dosage: 50 MG, QWK
     Route: 058
  2. ARAVA [Concomitant]
     Dosage: 10 MG, UNK
  3. CALCIUM 500+D [Concomitant]
     Dosage: UNK
  4. OMEGA 3 6 9                        /01334101/ [Concomitant]
     Dosage: UNK
  5. GINKGO BILOBA [Concomitant]
     Dosage: 60 MG, UNK

REACTIONS (1)
  - Upper respiratory tract infection [Unknown]
